FAERS Safety Report 22631881 (Version 2)
Quarter: 2023Q2

REPORT INFORMATION
  Report Type: Report from Study
  Country: US (occurrence: US)
  Receive Date: 20230623
  Receipt Date: 20230623
  Transmission Date: 20230722
  Serious: No
  Sender: FDA-Public Use
  Company Number: US-002147023-NVSC2023US140788

PATIENT
  Sex: Male

DRUGS (8)
  1. TRIAMCINOLONE [Suspect]
     Active Substance: TRIAMCINOLONE
     Indication: Psoriasis
     Dosage: UNK
     Route: 065
  2. COSENTYX [Suspect]
     Active Substance: SECUKINUMAB
     Indication: Product used for unknown indication
     Dosage: UNK
     Route: 065
  3. CYCLOSPORINE [Concomitant]
     Active Substance: CYCLOSPORINE
     Indication: Renal disorder
     Dosage: UNK
     Route: 065
  4. CYCLOSPORINE [Concomitant]
     Active Substance: CYCLOSPORINE
     Indication: Liver injury
  5. SORIATANE [Concomitant]
     Active Substance: ACITRETIN
     Indication: Renal disorder
     Dosage: UNK
     Route: 065
  6. SORIATANE [Concomitant]
     Active Substance: ACITRETIN
     Indication: Liver injury
  7. METHOTREXATE [Concomitant]
     Active Substance: METHOTREXATE
     Indication: Renal disorder
     Dosage: UNK
     Route: 065
  8. METHOTREXATE [Concomitant]
     Active Substance: METHOTREXATE
     Indication: Liver injury

REACTIONS (2)
  - Psoriasis [Unknown]
  - Drug ineffective [Unknown]
